FAERS Safety Report 11295220 (Version 3)
Quarter: 2015Q3

REPORT INFORMATION
  Report Type: Spontaneous
  Country: CH (occurrence: CH)
  Receive Date: 20150723
  Receipt Date: 20150805
  Transmission Date: 20151125
  Serious: Yes (Hospitalization)
  Sender: FDA-Public Use
  Company Number: PHHY2015CH087520

PATIENT
  Sex: Male

DRUGS (2)
  1. RITALIN [Suspect]
     Active Substance: METHYLPHENIDATE HYDROCHLORIDE
     Indication: ATTENTION DEFICIT/HYPERACTIVITY DISORDER
     Dosage: 30 MG, QD
     Route: 048
     Dates: start: 1982
  2. RITALIN [Suspect]
     Active Substance: METHYLPHENIDATE HYDROCHLORIDE
     Dosage: FEW MONTHS AGO THE PATIENT TRIED AGAIN RITALIN
     Route: 048

REACTIONS (3)
  - Mental impairment [Recovering/Resolving]
  - Intelligence test abnormal [Recovering/Resolving]
  - Performance status decreased [Recovering/Resolving]
